FAERS Safety Report 8962707 (Version 2)
Quarter: 2013Q2

REPORT INFORMATION
  Report Type: Report from Study
  Country: BR (occurrence: BR)
  Receive Date: 20121214
  Receipt Date: 20130514
  Transmission Date: 20140414
  Serious: Yes (Death, Hospitalization, Other)
  Sender: FDA-Public Use
  Company Number: PHHY2012BR114986

PATIENT
  Age: 79 Year
  Sex: Male

DRUGS (6)
  1. FORASEQ [Suspect]
     Indication: EMPHYSEMA
     Dosage: 1 DF, BID
  2. GARDENALE//PHENOBARBITAL [Concomitant]
     Indication: EPILEPSY
     Dosage: 1 MG, QD
     Route: 048
  3. TOPIRAMATE [Concomitant]
     Indication: EPILEPSY
     Dosage: 3 DF, QD
     Route: 048
  4. GLIMEPIRIDE [Concomitant]
     Indication: DIABETES MELLITUS
     Dosage: 1 DF, QD
     Route: 048
  5. GLIFAGE [Concomitant]
     Indication: DIABETES MELLITUS
     Dosage: 2 DF, QD
     Route: 048
  6. SIMVASTATIN [Concomitant]
     Indication: HYPERCHOLESTEROLAEMIA
     Dosage: 1 DF, QD
     Route: 048
     Dates: end: 201206

REACTIONS (9)
  - Emphysema [Fatal]
  - Multi-organ failure [Fatal]
  - Aspiration bronchial [Unknown]
  - Bacterial infection [Unknown]
  - Aspiration pleural cavity [Unknown]
  - Pneumonia [Unknown]
  - Dementia Alzheimer^s type [Unknown]
  - Memory impairment [Unknown]
  - Gait disturbance [Unknown]
